FAERS Safety Report 23393167 (Version 1)
Quarter: 2024Q1

REPORT INFORMATION
  Report Type: Report from Study
  Country: US (occurrence: None)
  Receive Date: 20240111
  Receipt Date: 20240111
  Transmission Date: 20240409
  Serious: Yes (Other)
  Sender: FDA-Public Use
  Company Number: 2024A003462

PATIENT
  Sex: Male
  Weight: 61.2 kg

DRUGS (9)
  1. CALQUENCE [Suspect]
     Active Substance: ACALABRUTINIB
     Indication: Chronic lymphocytic leukaemia
     Route: 048
     Dates: start: 202301
  2. ATORVASTATIN [Concomitant]
     Active Substance: ATORVASTATIN
  3. LOSARTAN [Concomitant]
     Active Substance: LOSARTAN
  4. AMLODIPINE [Concomitant]
     Active Substance: AMLODIPINE BESYLATE
  5. VITAMINS [Concomitant]
     Active Substance: VITAMINS
  6. VITAMIN D [Concomitant]
     Active Substance: VITAMIN D NOS
  7. TAMSULOSIN [Concomitant]
     Active Substance: TAMSULOSIN
  8. BENZONATATE [Concomitant]
     Active Substance: BENZONATATE
  9. AUGMENTIN [Concomitant]
     Active Substance: AMOXICILLIN\CLAVULANATE POTASSIUM

REACTIONS (3)
  - Blood viscosity decreased [Recovering/Resolving]
  - Haemorrhage [Recovering/Resolving]
  - Blood pressure increased [Not Recovered/Not Resolved]
